FAERS Safety Report 7277445-8 (Version None)
Quarter: 2011Q1

REPORT INFORMATION
  Report Type: 
  Country: None (occurrence: None)
  Receive Date: 20110207
  Receipt Date: 20110131
  Transmission Date: 20110831
  Serious: Yes (Other)
  Sender: FDA-Public Use
  Company Number: FR-BRISTOL-MYERS SQUIBB COMPANY-15483514

PATIENT
  Age: 31 Year
  Sex: Female

DRUGS (4)
  1. RETROVIR [Suspect]
     Indication: ANTIRETROVIRAL THERAPY
     Dosage: 1 DF = 200MG/20ML,SOLE INJECTION COURSE:1
     Route: 042
     Dates: start: 20090703
  2. REYATAZ [Suspect]
     Indication: ANTIRETROVIRAL THERAPY
     Dosage: COURSE:1
  3. ZERIT [Suspect]
     Indication: ANTIRETROVIRAL THERAPY
     Dosage: COURSE:1
  4. EPIVIR [Suspect]
     Indication: ANTIRETROVIRAL THERAPY
     Dosage: COURSE:1

REACTIONS (3)
  - CAESAREAN SECTION [None]
  - LIVE BIRTH [None]
  - PREGNANCY [None]
